FAERS Safety Report 6526946-6 (Version None)
Quarter: 2010Q1

REPORT INFORMATION
  Report Type: 
  Country: None (occurrence: None)
  Receive Date: 20100104
  Receipt Date: 20100104
  Transmission Date: 20100710
  Serious: No
  Sender: FDA-Public Use
  Company Number: None

PATIENT
  Sex: Female
  Weight: 55.3388 kg

DRUGS (2)
  1. AVELOX [Suspect]
     Indication: PNEUMONIA
     Dosage: 1 TABLET 400MG DAILY
     Dates: start: 20091124
  2. AVELOX [Suspect]
     Indication: PNEUMONIA
     Dosage: 1 TABLET 400MG DAILY
     Dates: start: 20091125

REACTIONS (10)
  - ANXIETY [None]
  - BURNING SENSATION [None]
  - DRY MOUTH [None]
  - DYSPNOEA [None]
  - GENERALISED ERYTHEMA [None]
  - HEART RATE INCREASED [None]
  - PALPITATIONS [None]
  - RESTLESSNESS [None]
  - THIRST [None]
  - TREMOR [None]
